FAERS Safety Report 14309917 (Version 1)
Quarter: 2017Q4

REPORT INFORMATION
  Report Type: Spontaneous
  Country: ES (occurrence: ES)
  Receive Date: 20171220
  Receipt Date: 20171220
  Transmission Date: 20180321
  Serious: Yes (Other)
  Sender: FDA-Public Use
  Company Number: ES-PFIZER INC-2017535884

PATIENT
  Sex: Male

DRUGS (3)
  1. FLIXOTIDE [Suspect]
     Active Substance: FLUTICASONE PROPIONATE
     Indication: ASTHMA
  2. ZITROMAX [Suspect]
     Active Substance: AZITHROMYCIN
     Dosage: 1.5 ML, FROM MONDAY TO THURSDAY ON, FROM FRIDAY TO SUNDAY OFF
  3. ZITROMAX [Suspect]
     Active Substance: AZITHROMYCIN
     Indication: ASTHMA
     Dosage: 1 ML, FROM MONDAY TO THURSDAY ON, FROM FRIDAY TO SUNDAY OFF

REACTIONS (3)
  - Deafness [Unknown]
  - Tonsillitis [Recovered/Resolved]
  - Off label use [Unknown]
